FAERS Safety Report 20824718 (Version 1)
Quarter: 2022Q2

REPORT INFORMATION
  Report Type: Spontaneous
  Country: DE (occurrence: DE)
  Receive Date: 20220513
  Receipt Date: 20220513
  Transmission Date: 20220721
  Serious: Yes (Other)
  Sender: FDA-Public Use
  Company Number: None

PATIENT
  Age: 71 Year
  Sex: Female

DRUGS (7)
  1. HYDROCHLOROTHIAZIDE [Interacting]
     Active Substance: HYDROCHLOROTHIAZIDE
     Dosage: INGESTION EARLY,HCT 12.5 MG,UNIT DOSE 12.5MG,FREQUENCY TIME 1 DAYS
  2. VALSARTAN [Interacting]
     Active Substance: VALSARTAN
     Dosage: 320 MILLIGRAM DAILY; TAKE 160MG IN THE MORNING AND IN THE EVENING
  3. AMLODIPINE BESYLATE [Interacting]
     Active Substance: AMLODIPINE BESYLATE
     Dosage: 10 MILLIGRAM DAILY; TAKE 5MG IN THE MORNING AND IN THE EVENING
  4. HYPERICUM PERFORATUM WHOLE [Interacting]
     Active Substance: HYPERICUM PERFORATUM WHOLE
     Indication: Depression
     Dosage: LAIF 900
     Dates: start: 20211101, end: 20220412
  5. HYPERICUM PERFORATUM WHOLE [Interacting]
     Active Substance: HYPERICUM PERFORATUM WHOLE
     Indication: Generalised anxiety disorder
  6. BUDESONIDE [Concomitant]
     Active Substance: BUDESONIDE
     Indication: Asthma
     Dosage: 2 DOSAGE FORMS DAILY; 1 STROKE IN THE MORNING AND IN THE EVENING
     Route: 055
  7. LEVOTHYROXINE SODIUM [Concomitant]
     Active Substance: LEVOTHYROXINE SODIUM
     Dosage: L-THYROXIN 100

REACTIONS (6)
  - Blood pressure increased [Recovering/Resolving]
  - Arrhythmia [Recovering/Resolving]
  - Anxiety [Unknown]
  - Drug interaction [Unknown]
  - Panic disorder [Unknown]
  - Muscle spasms [Recovering/Resolving]

NARRATIVE: CASE EVENT DATE: 20210101
